FAERS Safety Report 9478501 (Version 1)
Quarter: 2013Q3

REPORT INFORMATION
  Report Type: Spontaneous
  Country: US (occurrence: None)
  Receive Date: 20130822
  Receipt Date: 20130822
  Transmission Date: 20140515
  Serious: Yes (Death, Other)
  Sender: FDA-Public Use
  Company Number: UTC-036805

PATIENT
  Age: 61 Year
  Sex: Female

DRUGS (3)
  1. REMODULIN [Suspect]
     Indication: PULMONARY ARTERIAL HYPERTENSION
     Dosage: 0.052 UG/KG, 1 IN 1 MIN) INTRAVENOUS DRIP
     Route: 042
     Dates: start: 20060912
  2. COUMADIN (WARFARIN SODIUM) (UNKNOWN) [Concomitant]
  3. REVATIO (SILDENAFIL CITRAET) (UNKNOWN) [Concomitant]

REACTIONS (2)
  - Fall [None]
  - International normalised ratio increased [None]
